FAERS Safety Report 7955249-8 (Version None)
Quarter: 2011Q4

REPORT INFORMATION
  Report Type: 
  Country: None (occurrence: None)
  Receive Date: 20111202
  Receipt Date: 20111117
  Transmission Date: 20120403
  Serious: Yes (Other)
  Sender: FDA-Public Use
  Company Number: PH-BRISTOL-MYERS SQUIBB COMPANY-16265167

PATIENT
  Age: 33 Year
  Sex: Male

DRUGS (3)
  1. BLINDED: PLACEBO [Suspect]
     Indication: SCHIZOPHRENIA
  2. ARIPIPRAZOLE [Suspect]
     Indication: SCHIZOPHRENIA
  3. ABILIFY [Suspect]
     Indication: SCHIZOPHRENIA
     Route: 048
     Dates: start: 20110525, end: 20111117

REACTIONS (1)
  - BLOOD BILIRUBIN ABNORMAL [None]
